FAERS Safety Report 17740120 (Version 2)
Quarter: 2020Q2

REPORT INFORMATION
  Report Type: Report from Study
  Country: US (occurrence: US)
  Receive Date: 20200504
  Receipt Date: 20200508
  Transmission Date: 20200714
  Serious: No
  Sender: FDA-Public Use
  Company Number: US-HORIZON-TEP-0110-2020

PATIENT
  Age: 66 Year
  Sex: Female

DRUGS (5)
  1. TEPEZZA [Suspect]
     Active Substance: TEPROTUMUMAB-TRBW
     Indication: ENDOCRINE OPHTHALMOPATHY
     Dosage: EVERY THREE WEEKS
     Route: 042
     Dates: start: 20200428
  2. METOPROLOL. [Concomitant]
     Active Substance: METOPROLOL
     Indication: HYPERTENSION
     Dosage: 25MG DAILY (TWICE A DAY IF BLOOD PRESSURE WAS HIGH)
  3. AMLODIPINE/BENAZEPRIL [Concomitant]
     Active Substance: AMLODIPINE BESYLATE\BENAZEPRIL HYDROCHLORIDE
     Indication: HYPERTENSION
     Dosage: 5/40 EVERY DAY
  4. METHIMAZOLE. [Concomitant]
     Active Substance: METHIMAZOLE
     Dosage: 20MG DAILY
  5. LATANOPROST. [Concomitant]
     Active Substance: LATANOPROST
     Dosage: DAILY

REACTIONS (4)
  - Hallucination [Recovered/Resolved]
  - Abdominal discomfort [Recovered/Resolved]
  - Nausea [Recovered/Resolved]
  - Fatigue [Unknown]

NARRATIVE: CASE EVENT DATE: 20200428
